FAERS Safety Report 8906220 (Version 1)
Quarter: 2012Q4

REPORT INFORMATION
  Report Type: Spontaneous
  Country: US (occurrence: None)
  Receive Date: 20121114
  Receipt Date: 20121114
  Transmission Date: 20130627
  Serious: No
  Sender: FDA-Public Use
  Company Number: None

PATIENT
  Age: 57 Year
  Sex: Female
  Weight: 56.7 kg

DRUGS (1)
  1. KENALOG [Suspect]
     Indication: PAIN IN HIP
     Dates: start: 20120925, end: 20120925

REACTIONS (5)
  - Influenza like illness [None]
  - Back pain [None]
  - Fatigue [None]
  - Fatigue [None]
  - Abdominal discomfort [None]
